FAERS Safety Report 9167514 (Version 1)
Quarter: 2013Q1

REPORT INFORMATION
  Report Type: Report from Study
  Country: US (occurrence: US)
  Receive Date: 20130318
  Receipt Date: 20130318
  Transmission Date: 20140127
  Serious: Yes (Hospitalization, Other)
  Sender: FDA-Public Use
  Company Number: US-GENZYME-LEUK-1000337

PATIENT
  Age: 2 Year
  Sex: Male
  Weight: 12 kg

DRUGS (7)
  1. LEUKINE [Suspect]
     Indication: NEUROBLASTOMA
     Dosage: UNK
     Route: 058
     Dates: start: 20121208, end: 20121209
  2. LEUKINE [Suspect]
     Dosage: UNK
     Route: 042
     Dates: start: 20121210, end: 20121222
  3. INVESTIGATIONAL DRUG [Suspect]
     Indication: NEUROBLASTOMA
     Dosage: 13 MG, QD (1 IN 1 DAY)
     Route: 042
     Dates: start: 20130108, end: 20130111
  4. ISOTRETINOIN [Suspect]
     Indication: NEUROBLASTOMA
     Dosage: 30 MG, BID
     Route: 048
     Dates: start: 20121220, end: 20130102
  5. INTERLEUKIN-2 [Suspect]
     Indication: NEUROBLASTOMA
     Dosage: 2.3 IUM, QD (1 IN 1 DAY)
     Route: 042
     Dates: start: 20130108, end: 20130111
  6. GABAPENTIN [Concomitant]
     Indication: PAIN
     Dosage: 50 MG, TID
     Route: 048
     Dates: start: 20130104
  7. BACTRIM [Concomitant]
     Indication: PROPHYLAXIS
     Dosage: 5 ML, BID ON SATURDAY AND SUNDAY
     Route: 048
     Dates: start: 20121103

REACTIONS (3)
  - Fatigue [Recovered/Resolved]
  - Platelet count decreased [Unknown]
  - Blood albumin decreased [Unknown]
